FAERS Safety Report 9632058 (Version 1)
Quarter: 2013Q4

REPORT INFORMATION
  Report Type: Report from Study
  Country: DE (occurrence: DE)
  Receive Date: 20131018
  Receipt Date: 20131018
  Transmission Date: 20140711
  Serious: Yes (Hospitalization)
  Sender: FDA-Public Use
  Company Number: DE-SA-2013SA102181

PATIENT
  Age: 68 Year
  Sex: Female
  Weight: 61 kg

DRUGS (5)
  1. MULTAQ [Suspect]
     Indication: ATRIAL FIBRILLATION
     Route: 065
     Dates: start: 20120506
  2. BETA BLOCKING AGENTS [Concomitant]
     Dates: start: 201106
  3. RIVAROXABAN [Concomitant]
     Dates: start: 20110630
  4. AZILSARTAN [Concomitant]
  5. INEGY [Concomitant]

REACTIONS (1)
  - Atrial fibrillation [Unknown]
